FAERS Safety Report 5776073-0 (Version None)
Quarter: 2008Q2

REPORT INFORMATION
  Report Type: 
  Country: None (occurrence: None)
  Receive Date: 20080613
  Receipt Date: 20080603
  Transmission Date: 20081010
  Serious: Yes (Other)
  Sender: FDA-Public Use
  Company Number: 2007S1000100

PATIENT
  Age: 22 Year
  Sex: Female

DRUGS (1)
  1. SORIATANE [Suspect]
     Indication: KERATOSIS FOLLICULAR
     Dosage: 10 MG; QD; PO
     Route: 048
     Dates: start: 20060701, end: 20060830

REACTIONS (3)
  - ALCOHOL USE [None]
  - DRUG EXPOSURE DURING PREGNANCY [None]
  - PREGNANCY [None]
